FAERS Safety Report 7300715-1 (Version None)
Quarter: 2011Q1

REPORT INFORMATION
  Report Type: 
  Country: None (occurrence: None)
  Receive Date: 20110207
  Receipt Date: 20110121
  Transmission Date: 20110831
  Serious: Yes (Death)
  Sender: FDA-Public Use
  Company Number: EU-2011-10002

PATIENT
  Age: 58 Year
  Sex: Male
  Weight: 57 kg

DRUGS (15)
  1. CARBOPLATIN [Concomitant]
  2. TOPOTECAN HYDROCHLORIDE (TOPOTECAN HYDROCHLORIDE) [Concomitant]
  3. SAMSCA [Suspect]
     Indication: INAPPROPRIATE ANTIDIURETIC HORMONE SECRETION
     Dosage: 15 MG MILLIGRAMS, QD, 30 MG MILLIGRAMS, ORAL
     Route: 048
     Dates: start: 20100501, end: 20100801
  4. SAMSCA [Suspect]
     Indication: INAPPROPRIATE ANTIDIURETIC HORMONE SECRETION
     Dosage: 15 MG MILLIGRAMS, QD, 30 MG MILLIGRAMS, ORAL
     Route: 048
     Dates: end: 20100501
  5. DEMECLOCYCLINE HCL [Concomitant]
  6. ESOMEPRAZOLE MAGNESIUM (ESOMEPRAZOLE MAGNESIUM) [Concomitant]
  7. MORPHINE SULFATE [Concomitant]
  8. CISPLATIN [Concomitant]
  9. ESCITALOPRAM [Concomitant]
  10. VEPESID [Concomitant]
  11. SODIUM CHLORIDE 0.9% [Concomitant]
  12. LACTULOSE [Concomitant]
  13. MORPHINE SULFATE [Concomitant]
  14. VEPESID [Concomitant]
  15. CELLTOP (ETOPOSIDE) [Concomitant]

REACTIONS (2)
  - SMALL CELL LUNG CANCER STAGE UNSPECIFIED [None]
  - CONDITION AGGRAVATED [None]
